FAERS Safety Report 8079739-5 (Version None)
Quarter: 2012Q1

REPORT INFORMATION
  Report Type: 
  Country: None (occurrence: None)
  Receive Date: 20120128
  Receipt Date: 20110719
  Transmission Date: 20120608
  Serious: No
  Sender: FDA-Public Use
  Company Number: US-ABBOTT-11P-163-0840403-00

PATIENT
  Age: 23 Year
  Sex: Female

DRUGS (5)
  1. KLONOPIN [Concomitant]
     Indication: ANXIETY
     Dosage: AS NEEDED
  2. FOLIC ACID [Concomitant]
     Indication: VITAMIN SUPPLEMENTATION
     Dosage: DAILY
  3. IRON [Concomitant]
     Indication: MINERAL SUPPLEMENTATION
     Dosage: DAILY
  4. HUMIRA [Suspect]
     Indication: CROHN'S DISEASE
     Dates: start: 20100701
  5. ZOLOFT [Concomitant]
     Indication: PRODUCT USED FOR UNKNOWN INDICATION
     Dosage: DAILY

REACTIONS (1)
  - FATIGUE [None]
